FAERS Safety Report 10039013 (Version 1)
Quarter: 2014Q1

REPORT INFORMATION
  Report Type: Spontaneous
  Country: US (occurrence: None)
  Receive Date: 20140306
  Receipt Date: 20140306
  Transmission Date: 20141002
  Serious: Yes (Hospitalization)
  Sender: FDA-Public Use
  Company Number: 163-21880-13061465

PATIENT
  Age: 64 Year
  Sex: Female

DRUGS (11)
  1. REVLIMID [Suspect]
     Indication: PLASMA CELL MYELOMA
     Dosage: 25 MG, 1 IN 1 D, PO 04/13/2013-06/13/2013 THERAPY DATES
     Route: 048
     Dates: start: 20130413, end: 20130613
  2. CENTRUM SILVER (CENTRUM SILVER) [Concomitant]
  3. DYAZIDE (DYAZIDE) [Concomitant]
  4. COREG (CARVEDILOL) [Concomitant]
  5. CELEBREX (CELEBCOXIB) [Concomitant]
  6. DEXAMETHASONE (DEXAMETHASONE) [Concomitant]
  7. SYNTHROID (LEVOTHYROXINE SODIUM) [Concomitant]
  8. OS-CAL 500 + D (CALCITE D) [Concomitant]
  9. ASPIRIN (ESOMEPRAZOLE) [Concomitant]
  10. NIACIN (NICOTINIC ACID) [Concomitant]
  11. NEXIUM (ESOMEPRAZOLE) [Concomitant]

REACTIONS (2)
  - Deep vein thrombosis [None]
  - Pneumonia [None]
